FAERS Safety Report 24656075 (Version 3)
Quarter: 2025Q4

REPORT INFORMATION
  Report Type: Spontaneous
  Country: US (occurrence: US)
  Receive Date: 20241124
  Receipt Date: 20251119
  Transmission Date: 20260118
  Serious: No
  Sender: SANOFI AVENTIS
  Company Number: US-SA-2024SA339687

PATIENT
  Age: 60 Year
  Sex: Female

DRUGS (20)
  1. DUPIXENT [Suspect]
     Active Substance: DUPILUMAB
     Indication: Dermatitis atopic
     Dosage: 300 MG, QOW
     Route: 058
     Dates: start: 202302
  2. DUPIXENT [Suspect]
     Active Substance: DUPILUMAB
     Indication: Nasal polyps
  3. DUPIXENT [Suspect]
     Active Substance: DUPILUMAB
     Indication: Nasal polyps
     Dosage: 300 MG, QOW
     Route: 058
     Dates: start: 20231221
  4. DUPIXENT [Suspect]
     Active Substance: DUPILUMAB
     Indication: Eczema
  5. IPRATROPIUM [Concomitant]
     Active Substance: IPRATROPIUM
     Dosage: UNK
  6. JARDIANCE [Concomitant]
     Active Substance: EMPAGLIFLOZIN
     Dosage: UNK
  7. HYDROXYZINE [Concomitant]
     Active Substance: HYDROXYZINE HYDROCHLORIDE
     Dosage: UNK
  8. ZESTRIL [Concomitant]
     Active Substance: LISINOPRIL
     Dosage: UNK
  9. PANTOPRAZOLE [Concomitant]
     Active Substance: PANTOPRAZOLE
     Dosage: UNK
  10. FLUTICASONE [Concomitant]
     Active Substance: FLUTICASONE
     Dosage: UNK
  11. SPIRONOLACTONE [Concomitant]
     Active Substance: SPIRONOLACTONE
     Dosage: UNK
  12. SERTRALINE [Concomitant]
     Active Substance: SERTRALINE HYDROCHLORIDE
     Dosage: UNK
  13. SPIRIVA [Concomitant]
     Active Substance: TIOTROPIUM BROMIDE MONOHYDRATE
     Dosage: UNK
  14. CLOPIDOGREL [Concomitant]
     Active Substance: CLOPIDOGREL BISULFATE
     Dosage: UNK
  15. CETIRIZINE [Concomitant]
     Active Substance: CETIRIZINE HYDROCHLORIDE
     Dosage: UNK
  16. CARAFATE [Concomitant]
     Active Substance: SUCRALFATE
     Dosage: UNK
  17. AZELASTINE [Concomitant]
     Active Substance: AZELASTINE
     Dosage: UNK
  18. ATROVENT [Concomitant]
     Active Substance: IPRATROPIUM BROMIDE
     Dosage: UNK
  19. ATORVASTATIN [Concomitant]
     Active Substance: ATORVASTATIN
     Dosage: UNK
  20. FLUOCINOLONE [Concomitant]
     Active Substance: FLUOCINOLONE
     Dosage: UNK

REACTIONS (2)
  - Nasopharyngitis [Unknown]
  - Dermatitis atopic [Unknown]
